FAERS Safety Report 9737147 (Version 1)
Quarter: 2013Q4

REPORT INFORMATION
  Report Type: Report from Study
  Country: DE (occurrence: DE)
  Receive Date: 20131206
  Receipt Date: 20131206
  Transmission Date: 20140711
  Serious: Yes (Hospitalization)
  Sender: FDA-Public Use
  Company Number: DE-ABBVIE-13P-062-1174707-00

PATIENT
  Age: 44 Year
  Sex: Male
  Weight: 86 kg

DRUGS (6)
  1. HUMIRA [Suspect]
     Indication: ANKYLOSING SPONDYLITIS
     Route: 058
     Dates: start: 2008, end: 201309
  2. ARCOXIA [Suspect]
     Indication: ANKYLOSING SPONDYLITIS
     Dosage: 90 MG AS NEEDED
     Route: 048
     Dates: start: 201108, end: 201309
  3. BISOLICH [Suspect]
     Indication: HYPERTENSION
     Route: 048
     Dates: start: 2009, end: 201309
  4. RAMILICH [Suspect]
     Indication: HYPERTENSION
     Dates: start: 2009, end: 201309
  5. OXYCODON [Suspect]
     Indication: ANKYLOSING SPONDYLITIS
     Dates: start: 2010, end: 201309
  6. INSULIN [Concomitant]
     Indication: DIABETES MELLITUS
     Route: 058
     Dates: start: 201306

REACTIONS (1)
  - Coronary artery disease [Recovered/Resolved]
